FAERS Safety Report 8286967-2 (Version None)
Quarter: 2012Q2

REPORT INFORMATION
  Report Type: 
  Country: None (occurrence: None)
  Receive Date: 20120416
  Receipt Date: 20120409
  Transmission Date: 20120825
  Serious: No
  Sender: FDA-Public Use
  Company Number: US-PFIZER INC-2012089486

PATIENT
  Sex: Male
  Weight: 77.098 kg

DRUGS (2)
  1. VIAGRA [Suspect]
     Indication: ERECTILE DYSFUNCTION
     Dosage: HALF OF A 100MG TABLET, AS NEEDED
  2. KALETRA [Suspect]
     Indication: PROPHYLAXIS AGAINST HIV INFECTION
     Dosage: TWO CAPSULES OF 200/50MG, 2X/DAY
     Dates: start: 20120316

REACTIONS (1)
  - DRUG INEFFECTIVE [None]
